FAERS Safety Report 26126959 (Version 1)
Quarter: 2025Q4

REPORT INFORMATION
  Report Type: Spontaneous
  Country: US (occurrence: None)
  Receive Date: 20251205
  Receipt Date: 20251205
  Transmission Date: 20260119
  Serious: Yes (Hospitalization)
  Sender: FDA-CTU
  Company Number: None

PATIENT
  Age: 50 Year
  Sex: Female

DRUGS (7)
  1. MYCOPHENOLATE MOFETIL [Suspect]
     Active Substance: MYCOPHENOLATE MOFETIL
     Indication: Transplant
     Dosage: 1000 MG TWICE A DAY ORAL ?
     Route: 048
     Dates: start: 20251008
  2. TACROLIMUS [Suspect]
     Active Substance: TACROLIMUS
     Indication: Transplant
     Dosage: 2 MG TWICE A DAY ORAL ?
     Route: 048
     Dates: start: 20251008
  3. Tab-a-vite [Concomitant]
  4. polyethylene glycol powder [Concomitant]
  5. VALGANCICLOVIR HYDROCHLORIDE [Concomitant]
     Active Substance: VALGANCICLOVIR HYDROCHLORIDE
  6. Bumetanide 2mg [Concomitant]
  7. Hydrocortisone 25mg [Concomitant]

REACTIONS (2)
  - Cardiac disorder [None]
  - General physical condition abnormal [None]

NARRATIVE: CASE EVENT DATE: 20251115
